FAERS Safety Report 9474046 (Version 1)
Quarter: 2013Q3

REPORT INFORMATION
  Report Type: Spontaneous
  Country: US (occurrence: None)
  Receive Date: 20130820
  Receipt Date: 20130820
  Transmission Date: 20140515
  Serious: Yes (Hospitalization)
  Sender: FDA-Public Use
  Company Number: 2013US002248

PATIENT
  Age: 27 Year
  Sex: 0
  Weight: 59 kg

DRUGS (1)
  1. ICLUSIG [Suspect]
     Indication: ACUTE LYMPHOCYTIC LEUKAEMIA RECURRENT
     Route: 048
     Dates: end: 201307

REACTIONS (4)
  - Infection [None]
  - Neck pain [None]
  - Pyrexia [None]
  - Dyspnoea [None]
